FAERS Safety Report 15041870 (Version 3)
Quarter: 2020Q3

REPORT INFORMATION
  Report Type: Report from Study
  Country: ES (occurrence: ES)
  Receive Date: 20180621
  Receipt Date: 20190219
  Transmission Date: 20201104
  Serious: Yes (Death, Hospitalization)
  Sender: FDA-Public Use
  Company Number: ES-ROCHE-2141049

PATIENT
  Age: 61 Year
  Sex: Male
  Weight: 80.8 kg

DRUGS (9)
  1. CERGUTUZUMAB AMUNALEUKIN. [Suspect]
     Active Substance: CERGUTUZUMAB AMUNALEUKIN
     Indication: METASTATIC NEOPLASM
     Dosage: DATE OF LAST PRIOR TO SERIOUS ADVERSE EVENT(SAE) ON 11/JUN/2018?STARTING DOSE OF 6 MILLIGRAMS (MG) A
     Route: 042
     Dates: start: 20180604, end: 20180716
  2. VALSARTAN. [Concomitant]
     Active Substance: VALSARTAN
  3. ACETYLSALICYLIC ACID [Concomitant]
     Active Substance: ASPIRIN
     Route: 065
     Dates: start: 2008
  4. NITROGLYCERINE [Concomitant]
     Active Substance: NITROGLYCERIN
     Route: 065
     Dates: start: 20180706
  5. AMLODIPINE [Concomitant]
     Active Substance: AMLODIPINE BESYLATE
     Route: 065
     Dates: start: 20180605
  6. ATEZOLIZUMAB. [Suspect]
     Active Substance: ATEZOLIZUMAB
     Indication: METASTATIC NEOPLASM
     Dosage: DOSES OF 800 MG EVERY THREE WEEK OR 1200 MG.?DATE OF LAST PRIOR TO SERIOUS ADVERSE EVENT(SAE) ON 04/
     Route: 042
     Dates: start: 20180604, end: 20180716
  7. OMEPRAZOLE. [Concomitant]
     Active Substance: OMEPRAZOLE
     Route: 065
     Dates: start: 2018
  8. DEXKETOPROFEN [Concomitant]
     Active Substance: DEXKETOPROFEN
     Route: 065
     Dates: start: 20180617
  9. BISOPROLOL [Concomitant]
     Active Substance: BISOPROLOL
     Route: 065
     Dates: start: 200802

REACTIONS (1)
  - Small intestinal obstruction [Not Recovered/Not Resolved]

NARRATIVE: CASE EVENT DATE: 20180614
